FAERS Safety Report 7211785-3 (Version None)
Quarter: 2011Q1

REPORT INFORMATION
  Report Type: 
  Country: None (occurrence: None)
  Receive Date: 20110105
  Receipt Date: 20101230
  Transmission Date: 20110831
  Serious: Yes (Other)
  Sender: FDA-Public Use
  Company Number: RU-ABBOTT-11P-251-0694901-00

PATIENT
  Sex: Female

DRUGS (3)
  1. DEPAKENE [Suspect]
     Indication: EPILEPSY
     Route: 048
     Dates: start: 20101001, end: 20101101
  2. DEPAKENE [Suspect]
     Route: 048
     Dates: start: 20101201, end: 20101201
  3. DEPAKENE [Suspect]
     Route: 048
     Dates: start: 20101201

REACTIONS (3)
  - CONVULSION [None]
  - PRODUCT COUNTERFEIT [None]
  - PRODUCT SUBSTITUTION ISSUE [None]
